FAERS Safety Report 23186364 (Version 1)
Quarter: 2023Q4

REPORT INFORMATION
  Report Type: Spontaneous
  Country: US (occurrence: US)
  Receive Date: 20231115
  Receipt Date: 20231115
  Transmission Date: 20240110
  Serious: No
  Sender: FDA-Public Use
  Company Number: US-SA-SAC20231107000299

PATIENT
  Age: 38 Year
  Sex: Male

DRUGS (4)
  1. ELOCTATE [Suspect]
     Active Substance: EFMOROCTOCOG ALFA
     Indication: Factor VIII deficiency
     Dosage: 500 U, QW
     Route: 042
     Dates: start: 202304
  2. ELOCTATE [Suspect]
     Active Substance: EFMOROCTOCOG ALFA
     Indication: Factor VIII deficiency
     Dosage: 500 U, QW
     Route: 042
     Dates: start: 202304
  3. ELOCTATE [Suspect]
     Active Substance: EFMOROCTOCOG ALFA
     Dosage: 2000 U, QW
     Route: 042
  4. ELOCTATE [Suspect]
     Active Substance: EFMOROCTOCOG ALFA
     Dosage: 2000 U, QW
     Route: 042

REACTIONS (1)
  - Haemorrhage [Unknown]

NARRATIVE: CASE EVENT DATE: 20230101
